FAERS Safety Report 10385052 (Version 2)
Quarter: 2014Q4

REPORT INFORMATION
  Report Type: Spontaneous
  Country: JP (occurrence: JP)
  Receive Date: 20140814
  Receipt Date: 20141103
  Transmission Date: 20150528
  Serious: Yes (Death, Other)
  Sender: FDA-Public Use
  Company Number: PHHY2013JP160756

PATIENT
  Age: 79 Year
  Sex: Male

DRUGS (2)
  1. EXJADE [Suspect]
     Active Substance: DEFERASIROX
     Indication: IRON OVERLOAD
     Dosage: 1000 MG, DAILY
  2. EXJADE [Suspect]
     Active Substance: DEFERASIROX
     Indication: MYELODYSPLASTIC SYNDROME
     Dosage: 500 MG, DAILY
     Dates: start: 201010

REACTIONS (5)
  - Oesophagitis [Recovered/Resolved]
  - Pneumonia aspiration [Fatal]
  - Dysphagia [Unknown]
  - Malaise [Unknown]
  - Haemosiderosis [Not Recovered/Not Resolved]

NARRATIVE: CASE EVENT DATE: 201011
